FAERS Safety Report 8286540-6 (Version None)
Quarter: 2012Q2

REPORT INFORMATION
  Report Type: 
  Country: None (occurrence: None)
  Receive Date: 20120416
  Receipt Date: 20120409
  Transmission Date: 20120825
  Serious: Yes (Hospitalization, Other)
  Sender: FDA-Public Use
  Company Number: US-UCBSA-054883

PATIENT
  Age: 24 Month
  Sex: Female

DRUGS (3)
  1. DEPAKENE [Concomitant]
  2. VIMPAT [Suspect]
     Indication: CONVULSION
  3. VIMPAT [Suspect]
     Dates: start: 20120221

REACTIONS (1)
  - CONVULSION [None]
